APPROVED DRUG PRODUCT: EFFEXOR XR
Active Ingredient: VENLAFAXINE HYDROCHLORIDE
Strength: EQ 100MG BASE **Federal Register determination that product was not discontinued or withdrawn for safety or effectiveness reasons**
Dosage Form/Route: CAPSULE, EXTENDED RELEASE;ORAL
Application: N020699 | Product #003
Applicant: UPJOHN US 2 LLC
Approved: Oct 20, 1997 | RLD: Yes | RS: No | Type: DISCN